FAERS Safety Report 7501469-6 (Version None)
Quarter: 2011Q2

REPORT INFORMATION
  Report Type: 
  Country: None (occurrence: None)
  Receive Date: 20110524
  Receipt Date: 20100120
  Transmission Date: 20111010
  Serious: Yes (Death, Other)
  Sender: FDA-Public Use
  Company Number: US-BAYER-201012053NA

PATIENT
  Age: 47 Year
  Sex: Male
  Weight: 66 kg

DRUGS (18)
  1. FENTANYL [Concomitant]
     Dosage: 5 MG
     Route: 042
     Dates: start: 20030418
  2. MAGNESIUM SULFATE [Concomitant]
     Dosage: 3 GRAMS
     Route: 042
     Dates: start: 20030418
  3. CALCIUM CHLORIDE [Concomitant]
     Dosage: 1 GRAM
     Route: 042
     Dates: start: 20030418
  4. HEPARIN [Concomitant]
     Dosage: 20000 UNITS
     Route: 042
     Dates: start: 20030418
  5. NITROGLYCERIN [Concomitant]
     Dosage: UNK
     Route: 042
     Dates: start: 20030418
  6. PLATELETS [Concomitant]
     Dosage: 3 UNITS
     Route: 042
     Dates: start: 20030418
  7. TRASYLOL [Suspect]
     Indication: TRANSPLANT
     Dosage: INITIAL TEST DOSE
     Route: 042
     Dates: start: 20030418, end: 20030418
  8. DOPAMINE HCL [Concomitant]
     Dosage: UNK
     Route: 042
     Dates: start: 20030418
  9. RED BLOOD CELLS [Concomitant]
     Dosage: 4 UNITS
     Route: 042
     Dates: start: 20030418
  10. MILRINONE [Concomitant]
     Dosage: UNK
     Route: 042
     Dates: start: 20030418
  11. LASIX [Concomitant]
     Dosage: 20 MG
     Route: 042
     Dates: start: 20030418
  12. CEFAZOLIN [Concomitant]
     Dosage: 2 GRAMS
     Route: 042
     Dates: start: 20030418
  13. ESMOLOL [Concomitant]
     Dosage: 10 MG
     Route: 042
     Dates: start: 20030418
  14. SODIUM BICARBONATE [Concomitant]
     Dosage: 75 MILLIEQUIVALENTS
     Route: 042
     Dates: start: 20030418
  15. NEOSYNEPHRINE [Concomitant]
     Dosage: UNK
     Route: 042
     Dates: start: 20030418
  16. TRASYLOL [Suspect]
     Indication: MITRAL VALVE REPAIR
     Dosage: 200ML, CONTINUOUS INFUSION AT 50ML/HOUR.
     Route: 042
     Dates: start: 20030418, end: 20030418
  17. PLASMA [Concomitant]
     Dosage: 8 UNITS
     Route: 042
     Dates: start: 20030418
  18. VANCOMYCIN [Concomitant]
     Dosage: 1 GRAM
     Route: 042
     Dates: start: 20030418

REACTIONS (13)
  - RENAL INJURY [None]
  - FEAR [None]
  - DEATH [None]
  - ANXIETY [None]
  - ANHEDONIA [None]
  - INJURY [None]
  - EMOTIONAL DISTRESS [None]
  - MULTI-ORGAN FAILURE [None]
  - STRESS [None]
  - UNEVALUABLE EVENT [None]
  - RENAL FAILURE [None]
  - PAIN [None]
  - RENAL IMPAIRMENT [None]
